FAERS Safety Report 20744565 (Version 1)
Quarter: 2022Q2

REPORT INFORMATION
  Report Type: Spontaneous
  Country: US (occurrence: None)
  Receive Date: 20220422
  Receipt Date: 20220422
  Transmission Date: 20220721
  Serious: Yes (Hospitalization)
  Sender: FDA-Public Use
  Company Number: None

PATIENT
  Age: 68 Year
  Sex: Male

DRUGS (15)
  1. TACROLIMUS [Suspect]
     Active Substance: TACROLIMUS
     Indication: Renal transplant
     Dosage: FREQUENCY : TWICE A DAY;?
     Route: 048
     Dates: start: 20220110
  2. TACROLIMUS [Suspect]
     Active Substance: TACROLIMUS
     Indication: Heart transplant
  3. MYCOPHENOLIC ACID [Suspect]
     Active Substance: MYCOPHENOLIC ACID
     Indication: Renal transplant
     Dosage: FREQUENCY : TWICE A DAY;?
     Route: 048
     Dates: start: 20220110
  4. MYCOPHENOLIC ACID [Suspect]
     Active Substance: MYCOPHENOLIC ACID
     Indication: Heart transplant
  5. ASPIRIN [Concomitant]
     Active Substance: ASPIRIN
     Dates: start: 20220110
  6. Calcium-Vitamin D 500-200mg [Concomitant]
     Dates: start: 20220110
  7. FAMOTIDINE [Concomitant]
     Active Substance: FAMOTIDINE
     Dates: start: 20220110
  8. FERROUS SULFATE [Concomitant]
     Active Substance: FERROUS SULFATE
     Dates: start: 20220110
  9. MAGNESIUM OXIDE 400MG [Concomitant]
     Active Substance: MAGNESIUM OXIDE
     Dates: start: 20220110
  10. Nystatin 100,000 unit suspension [Concomitant]
     Dates: start: 20220110
  11. PRAVASTATIN [Concomitant]
     Active Substance: PRAVASTATIN
     Dates: start: 20220110
  12. PREDNISONE [Concomitant]
     Active Substance: PREDNISONE
     Dates: start: 20220110
  13. Stool softener 100mg [Concomitant]
     Dates: start: 20220110
  14. SULFAMETHOXAZOLE\TRIMETHOPRIM [Concomitant]
     Active Substance: SULFAMETHOXAZOLE\TRIMETHOPRIM
     Dates: start: 20220110
  15. TACROLIMUS [Concomitant]
     Active Substance: TACROLIMUS
     Dates: start: 20220110

REACTIONS (1)
  - Myocardial infarction [None]

NARRATIVE: CASE EVENT DATE: 20220422
